FAERS Safety Report 25414817 (Version 2)
Quarter: 2025Q2

REPORT INFORMATION
  Report Type: Report from Study
  Country: JP (occurrence: JP)
  Receive Date: 20250609
  Receipt Date: 20250613
  Transmission Date: 20250716
  Serious: Yes (Other)
  Sender: EISAI
  Company Number: JP-Eisai-EC-2025-190620

PATIENT

DRUGS (1)
  1. LEQEMBI [Suspect]
     Active Substance: LECANEMAB-IRMB
     Indication: Product used for unknown indication

REACTIONS (1)
  - Cerebral infarction [Unknown]
